FAERS Safety Report 25939858 (Version 1)
Quarter: 2025Q4

REPORT INFORMATION
  Report Type: Spontaneous
  Country: EU (occurrence: EU)
  Receive Date: 20251020
  Receipt Date: 20251020
  Transmission Date: 20260118
  Serious: Yes (Disabling)
  Sender: BOEHRINGER INGELHEIM
  Company Number: None

PATIENT
  Age: 77 Year
  Sex: Male

DRUGS (4)
  1. JARDIANCE [Suspect]
     Active Substance: EMPAGLIFLOZIN
     Indication: Type 2 diabetes mellitus
     Dates: start: 20230830, end: 20250819
  2. LOSARTAN [Concomitant]
     Active Substance: LOSARTAN
     Indication: Hypertension
     Dosage: 1 TABLETTI KERRAN VUOROKAUDESSA
     Dates: start: 20241230
  3. AMLODIPINE BESYLATE [Concomitant]
     Active Substance: AMLODIPINE BESYLATE
     Indication: Hypertension
     Dosage: 1 TABLETTI KERRAN P?IV?SS?
     Dates: start: 2024
  4. METFORMIN HYDROCHLORIDE [Concomitant]
     Active Substance: METFORMIN HYDROCHLORIDE
     Indication: Type 2 diabetes mellitus
     Dosage: 1 G KAHDESTI VUOROKAUDESSA
     Dates: start: 2024

REACTIONS (6)
  - Genital infection fungal [Recovered/Resolved with Sequelae]
  - Foreskin oedema [Recovered/Resolved with Sequelae]
  - Urethral obstruction [Recovered/Resolved with Sequelae]
  - Urethral abscess [Recovered/Resolved with Sequelae]
  - Urethral injury [Recovered/Resolved with Sequelae]
  - Bladder catheterisation [Recovered/Resolved with Sequelae]

NARRATIVE: CASE EVENT DATE: 20250811
